FAERS Safety Report 5114130-2 (Version None)
Quarter: 2006Q3

REPORT INFORMATION
  Report Type: 
  Country: None (occurrence: None)
  Receive Date: 20060921
  Receipt Date: 20060912
  Transmission Date: 20061208
  Serious: Yes (Death)
  Sender: FDA-Public Use
  Company Number: 2006097323

PATIENT
  Age: 4 Month
  Sex: Male
  Weight: 8.1647 kg

DRUGS (2)
  1. BENADRYL [Suspect]
     Indication: COUGH
     Dosage: ORAL
     Route: 048
     Dates: start: 20050209, end: 20050209
  2. DIMETAPP (BROMPHENIRAMINE MALEATE, PHENYLEPHRINE HYDROCHLORIDE, PHENYL [Suspect]
     Dosage: ORAL
     Route: 048
     Dates: start: 20050209, end: 20050209

REACTIONS (8)
  - APNOEA [None]
  - CYANOSIS [None]
  - DRUG TOXICITY [None]
  - LOSS OF CONSCIOUSNESS [None]
  - MUSCULOSKELETAL STIFFNESS [None]
  - PULMONARY CONGESTION [None]
  - PULSE ABSENT [None]
  - RHINORRHOEA [None]
